FAERS Safety Report 20502557 (Version 2)
Quarter: 2022Q1

REPORT INFORMATION
  Report Type: Spontaneous
  Country: IL (occurrence: IL)
  Receive Date: 20220222
  Receipt Date: 20220310
  Transmission Date: 20220424
  Serious: Yes (Hospitalization)
  Sender: FDA-Public Use
  Company Number: IL-AMERICAN REGENT INC-2022000414

PATIENT
  Age: 78 Year
  Sex: Male

DRUGS (2)
  1. VENOFER [Suspect]
     Active Substance: IRON SUCROSE
     Indication: Serum ferritin decreased
     Dosage: 200 MG (2 AMPULES, ONCE A MONTH)
     Dates: start: 202201, end: 202201
  2. VENOFER [Suspect]
     Active Substance: IRON SUCROSE
     Dosage: 200 MG (2 AMPULES, ONCE A MONTH)
     Dates: start: 20220206, end: 20220206

REACTIONS (4)
  - Dysuria [Recovered/Resolved]
  - Bladder pain [Recovered/Resolved]
  - Pollakiuria [Recovered/Resolved]
  - Drug intolerance [Unknown]

NARRATIVE: CASE EVENT DATE: 20220101
